FAERS Safety Report 19508960 (Version 1)
Quarter: 2021Q3

REPORT INFORMATION
  Report Type: Spontaneous
  Country: FR (occurrence: FR)
  Receive Date: 20210709
  Receipt Date: 20210709
  Transmission Date: 20211014
  Serious: Yes (Other)
  Sender: FDA-Public Use
  Company Number: FR-JNJFOC-20210703186

PATIENT
  Age: 67 Year
  Sex: Male
  Weight: 86 kg

DRUGS (6)
  1. AMLODIPINE [Concomitant]
     Active Substance: AMLODIPINE BESYLATE
     Route: 048
  2. SOLUPRED [PREDNISOLONE] [Concomitant]
     Active Substance: PREDNISOLONE
     Route: 048
     Dates: start: 20210608
  3. ZYTIGA [Suspect]
     Active Substance: ABIRATERONE ACETATE
     Indication: PROSTATE CANCER METASTATIC
     Route: 048
     Dates: start: 20210608, end: 20210618
  4. XGEVA [Concomitant]
     Active Substance: DENOSUMAB
     Route: 058
     Dates: start: 202103
  5. ZOLADEX [Concomitant]
     Active Substance: GOSERELIN ACETATE
     Route: 058
     Dates: start: 202102
  6. DIFFU K [Concomitant]
     Active Substance: POTASSIUM CHLORIDE
     Route: 048

REACTIONS (1)
  - Mixed liver injury [Unknown]

NARRATIVE: CASE EVENT DATE: 20210617
